FAERS Safety Report 23238733 (Version 1)
Quarter: 2023Q4

REPORT INFORMATION
  Report Type: Spontaneous
  Country: US (occurrence: US)
  Receive Date: 20231129
  Receipt Date: 20231129
  Transmission Date: 20240109
  Serious: No
  Sender: FDA-Public Use
  Company Number: US-GSK-US2023AMR165826

PATIENT
  Sex: Male

DRUGS (1)
  1. FLUTICASONE FUROATE [Suspect]
     Active Substance: FLUTICASONE FUROATE
     Indication: Product used for unknown indication
     Dosage: UNK, 200/25 MCG

REACTIONS (4)
  - Pollakiuria [Unknown]
  - Constipation [Unknown]
  - Dysphagia [Unknown]
  - Drug ineffective [Unknown]
